FAERS Safety Report 21058637 (Version 1)
Quarter: 2022Q3

REPORT INFORMATION
  Report Type: Spontaneous
  Country: JP (occurrence: JP)
  Receive Date: 20220708
  Receipt Date: 20220708
  Transmission Date: 20221026
  Serious: Yes (Hospitalization)
  Sender: FDA-Public Use
  Company Number: JP-JNJFOC-20220638232

PATIENT
  Age: 7 Decade
  Sex: Female
  Weight: 49 kg

DRUGS (3)
  1. TREMFYA [Suspect]
     Active Substance: GUSELKUMAB
     Indication: Palmoplantar pustulosis
     Dosage: EVERY 4 TO 8 WEEKS
     Route: 058
     Dates: start: 20211101
  2. TREMFYA [Suspect]
     Active Substance: GUSELKUMAB
     Dosage: EVERY 4 TO 8 WEEKS
     Route: 058
     Dates: start: 20211020, end: 20220520
  3. TREMFYA [Suspect]
     Active Substance: GUSELKUMAB

REACTIONS (1)
  - Paradoxical psoriasis [Recovered/Resolved]

NARRATIVE: CASE EVENT DATE: 20220530
